FAERS Safety Report 24098078 (Version 3)
Quarter: 2024Q3

REPORT INFORMATION
  Report Type: Report from Study
  Country: MX (occurrence: MX)
  Receive Date: 20240716
  Receipt Date: 20240826
  Transmission Date: 20241017
  Serious: Yes (Other)
  Sender: NOVARTIS
  Company Number: MX-002147023-NVSC2024MX144882

PATIENT
  Age: 34 Year
  Sex: Female
  Weight: 70 kg

DRUGS (5)
  1. KISQALI [Suspect]
     Active Substance: RIBOCICLIB
     Indication: Breast cancer
     Dosage: 3 X 200 MG (600MG), QD (FOR 21 DAYS IN A ROW AND RESTS 7 DAYS)
     Route: 048
     Dates: start: 20240625
  2. KISQALI [Suspect]
     Active Substance: RIBOCICLIB
     Dosage: 3 X 200 MG (600MG), QD
     Route: 048
     Dates: start: 20240627
  3. ANASTROZOLE [Concomitant]
     Active Substance: ANASTROZOLE
     Indication: Breast cancer
     Dosage: 1 DOSAGE FORM, QD
     Route: 048
     Dates: start: 20240625, end: 20240812
  4. LEVOTHYROXINE [Concomitant]
     Active Substance: LEVOTHYROXINE\LEVOTHYROXINE SODIUM
     Indication: Breast cancer
     Dosage: 1 DOSAGE FORM, QD (MORE THAN 10 YEARS AGO)
     Route: 048
  5. LETROZOLE [Concomitant]
     Active Substance: LETROZOLE
     Indication: Breast cancer
     Dosage: 1 DOSAGE FORM, QD
     Route: 048
     Dates: start: 20240812

REACTIONS (17)
  - Diplegia [Not Recovered/Not Resolved]
  - Anal injury [Unknown]
  - Hyperhidrosis [Not Recovered/Not Resolved]
  - Somnolence [Recovered/Resolved]
  - Constipation [Recovered/Resolved]
  - Insomnia [Not Recovered/Not Resolved]
  - Pain [Not Recovered/Not Resolved]
  - Decreased appetite [Recovered/Resolved]
  - Fatigue [Not Recovered/Not Resolved]
  - Feeling of despair [Unknown]
  - Nausea [Not Recovered/Not Resolved]
  - Food aversion [Not Recovered/Not Resolved]
  - Weight decreased [Not Recovered/Not Resolved]
  - Diarrhoea [Recovered/Resolved]
  - Vomiting [Recovered/Resolved]
  - Pain in extremity [Not Recovered/Not Resolved]
  - Gait inability [Not Recovered/Not Resolved]

NARRATIVE: CASE EVENT DATE: 20240625
